FAERS Safety Report 5217399-9 (Version None)
Quarter: 2007Q1

REPORT INFORMATION
  Report Type: 
  Country: None (occurrence: None)
  Receive Date: 20070124
  Receipt Date: 20060206
  Transmission Date: 20070707
  Serious: No
  Sender: FDA-Public Use
  Company Number: US-GLAXOSMITHKLINE-A0592497A

PATIENT
  Age: 63 Year
  Sex: Female

DRUGS (3)
  1. PAXIL CR [Suspect]
     Indication: FATIGUE
     Dosage: 12.5MG PER DAY
     Route: 048
  2. PAXIL [Suspect]
     Indication: FATIGUE
     Dosage: 20MG PER DAY
     Route: 048
  3. SYNTHROID [Concomitant]

REACTIONS (5)
  - BALANCE DISORDER [None]
  - DIZZINESS [None]
  - DRUG WITHDRAWAL SYNDROME [None]
  - HEADACHE [None]
  - ILL-DEFINED DISORDER [None]
